FAERS Safety Report 25769914 (Version 3)
Quarter: 2025Q4

REPORT INFORMATION
  Report Type: Spontaneous
  Country: US (occurrence: US)
  Receive Date: 20250907
  Receipt Date: 20251218
  Transmission Date: 20260117
  Serious: No
  Sender: SANOFI AVENTIS
  Company Number: US-SA-2025SA265483

PATIENT
  Age: 63 Year
  Sex: Female

DRUGS (1)
  1. DUPIXENT [Suspect]
     Active Substance: DUPILUMAB
     Indication: Asthma
     Dosage: 300 MG, QOW
     Route: 058
     Dates: start: 202310

REACTIONS (6)
  - Visual impairment [Recovered/Resolved]
  - Lacrimation increased [Not Recovered/Not Resolved]
  - Eye disorder [Unknown]
  - Condition aggravated [Unknown]
  - Ocular hyperaemia [Unknown]
  - Eye irritation [Not Recovered/Not Resolved]

NARRATIVE: CASE EVENT DATE: 20250801
